FAERS Safety Report 16132602 (Version 1)
Quarter: 2019Q1

REPORT INFORMATION
  Report Type: Spontaneous
  Country: US (occurrence: US)
  Receive Date: 20190329
  Receipt Date: 20190329
  Transmission Date: 20190418
  Serious: No
  Sender: FDA-Public Use
  Company Number: US-GLAXOSMITHKLINE-US2019052677

PATIENT
  Sex: Female

DRUGS (1)
  1. BENLYSTA [Suspect]
     Active Substance: BELIMUMAB
     Indication: PRODUCT USED FOR UNKNOWN INDICATION
     Dosage: UNK (IV DOSES ARE 2-WEEK INTERVALS FOR THE FIRST 3 DOSES AND AT 4-WEEK INTERVALS THEREAFTER)
     Route: 042
     Dates: start: 201812

REACTIONS (2)
  - Product dose omission [Unknown]
  - Insurance issue [Unknown]

NARRATIVE: CASE EVENT DATE: 201812
